FAERS Safety Report 11827129 (Version 1)
Quarter: 2015Q4

REPORT INFORMATION
  Report Type: Spontaneous
  Country: US (occurrence: US)
  Receive Date: 20151211
  Receipt Date: 20151211
  Transmission Date: 20160305
  Serious: Yes (Hospitalization, Other)
  Sender: FDA-Public Use
  Company Number: US-SHIRE-US201515748

PATIENT
  Sex: Female

DRUGS (2)
  1. GATTEX [Suspect]
     Active Substance: TEDUGLUTIDE\WATER
     Indication: SHORT-BOWEL SYNDROME
     Dosage: 0.32 ML, 1X/DAY:QD
     Route: 058
     Dates: start: 20100101, end: 20120112
  2. GATTEX [Suspect]
     Active Substance: TEDUGLUTIDE\WATER
     Dosage: 0.32 ML, 1X/DAY:QD
     Route: 058
     Dates: start: 20150110

REACTIONS (4)
  - Abdominal distension [Unknown]
  - Pneumonia viral [Unknown]
  - Flatulence [Unknown]
  - Muscle spasms [Unknown]

NARRATIVE: CASE EVENT DATE: 2010
